FAERS Safety Report 17745369 (Version 1)
Quarter: 2020Q2

REPORT INFORMATION
  Report Type: Spontaneous
  Country: FR (occurrence: FR)
  Receive Date: 20200504
  Receipt Date: 20200504
  Transmission Date: 20200714
  Serious: Yes (Hospitalization)
  Sender: FDA-Public Use
  Company Number: FR-TEVA-2020-FR-1229826

PATIENT
  Age: 40 Year
  Sex: Female
  Weight: 100 kg

DRUGS (6)
  1. PREDNISOLONE. [Suspect]
     Active Substance: PREDNISOLONE
     Indication: CORONAVIRUS INFECTION
     Dosage: 60MG THEN 40MG SINCE 06/04
     Route: 048
     Dates: start: 20200401, end: 20200408
  2. ROCEPHINE [Suspect]
     Active Substance: CEFTRIAXONE SODIUM
     Indication: CORONAVIRUS INFECTION
     Route: 042
     Dates: start: 20200401, end: 20200405
  3. KALETRA [Suspect]
     Active Substance: LOPINAVIR\RITONAVIR
     Indication: CORONAVIRUS INFECTION
     Dosage: 4 DOSAGE FORM
     Route: 048
     Dates: start: 20200401, end: 20200405
  4. PARACETAMOL [Concomitant]
     Active Substance: ACETAMINOPHEN
     Indication: PAIN
     Route: 048
     Dates: start: 20200401
  5. LOVENOX [Suspect]
     Active Substance: ENOXAPARIN SODIUM
     Indication: THROMBOSIS PROPHYLAXIS
     Dosage: 4000 IU
     Route: 058
     Dates: start: 20200401, end: 20200406
  6. AMOXICILLINE [Concomitant]
     Active Substance: AMOXICILLIN
     Indication: CORONAVIRUS INFECTION
     Dosage: 1 GRAM
     Route: 048
     Dates: start: 20200405, end: 20200409

REACTIONS (1)
  - Hepatocellular injury [Not Recovered/Not Resolved]

NARRATIVE: CASE EVENT DATE: 20200405
